FAERS Safety Report 13996581 (Version 1)
Quarter: 2017Q3

REPORT INFORMATION
  Report Type: Spontaneous
  Country: US (occurrence: US)
  Receive Date: 20170921
  Receipt Date: 20170921
  Transmission Date: 20171128
  Serious: Yes (Death, Hospitalization, Other)
  Sender: FDA-Public Use
  Company Number: US-JNJFOC-20170913352

PATIENT

DRUGS (6)
  1. ACETAMINOPHEN. [Concomitant]
     Active Substance: ACETAMINOPHEN
     Indication: PREMEDICATION
  2. DARATUMUMAB [Suspect]
     Active Substance: DARATUMUMAB
     Indication: AMYLOIDOSIS
     Dosage: WEEKLY FOR 8 WEEKS
     Route: 042
  3. DIPHENHYDRAMINE. [Concomitant]
     Active Substance: DIPHENHYDRAMINE
     Indication: PREMEDICATION
  4. DARATUMUMAB [Suspect]
     Active Substance: DARATUMUMAB
     Indication: AMYLOIDOSIS
     Dosage: EVERY OTHER WEEK FOR 8 DOSES
     Route: 042
  5. DARATUMUMAB [Suspect]
     Active Substance: DARATUMUMAB
     Indication: AMYLOIDOSIS
     Dosage: THEN EVERY 4 WEEKS.
     Route: 042
  6. DEXAMETHASONE. [Concomitant]
     Active Substance: DEXAMETHASONE
     Indication: PREMEDICATION

REACTIONS (10)
  - Chronic kidney disease [Unknown]
  - Anaemia [Unknown]
  - Blood disorder [Unknown]
  - Infection [Unknown]
  - Disease progression [Unknown]
  - Off label use [Unknown]
  - Amyloidosis [Fatal]
  - Cardiac failure [Unknown]
  - Pneumothorax [Unknown]
  - Infusion related reaction [Unknown]
